FAERS Safety Report 9113545 (Version 3)
Quarter: 2013Q2

REPORT INFORMATION
  Report Type: Spontaneous
  Country: US (occurrence: US)
  Receive Date: 20130131
  Receipt Date: 20130415
  Transmission Date: 20140414
  Serious: No
  Sender: FDA-Public Use
  Company Number: US-PFIZER INC-2013030254

PATIENT
  Age: 58 Year
  Sex: Female

DRUGS (5)
  1. ZOLOFT [Suspect]
     Indication: SEROTONIN SYNDROME
     Dosage: 200 MG DAILY MORNING WITH BREAKFAST
     Route: 048
  2. TOPAMAX [Concomitant]
     Dosage: 150 MG, 1X/DAY
  3. ZOCOR [Concomitant]
     Dosage: UNK
  4. CLARITIN [Concomitant]
     Dosage: UNK
  5. ZOFRAN [Concomitant]
     Indication: NAUSEA
     Dosage: UNK

REACTIONS (8)
  - Weight decreased [Unknown]
  - Therapeutic response unexpected [Unknown]
  - Injury [Unknown]
  - Gastroenteritis viral [Unknown]
  - Neuropathy peripheral [Unknown]
  - Malaise [Unknown]
  - Pain [Unknown]
  - Arthralgia [Unknown]
